FAERS Safety Report 13103284 (Version 2)
Quarter: 2017Q1

REPORT INFORMATION
  Report Type: Report from Study
  Country: FR (occurrence: FR)
  Receive Date: 20170110
  Receipt Date: 20170123
  Transmission Date: 20170428
  Serious: Yes (Hospitalization)
  Sender: FDA-Public Use
  Company Number: FR-ROCHE-1876475

PATIENT
  Age: 78 Year
  Sex: Male
  Weight: 79 kg

DRUGS (12)
  1. EUPRESSYL [Concomitant]
     Active Substance: URAPIDIL
     Route: 048
  2. EUPANTOL [Concomitant]
     Active Substance: PANTOPRAZOLE SODIUM
     Route: 048
  3. VEMURAFENIB [Suspect]
     Active Substance: VEMURAFENIB
     Indication: NEOPLASM MALIGNANT
     Dosage: SAE CYCLE NO. 2?DATE OF LAST DOSE: 02/JAN/2017?LAST DOSE: 1920 MG, CUMULATIVE DOSE: 107520 MG (AS PE
     Route: 048
     Dates: start: 20161108
  4. VEMURAFENIB [Suspect]
     Active Substance: VEMURAFENIB
     Indication: METASTASIS
  5. ALDACTONE [Concomitant]
     Active Substance: SPIRONOLACTONE
     Route: 048
  6. VEMURAFENIB [Suspect]
     Active Substance: VEMURAFENIB
     Indication: LUNG ADENOCARCINOMA
  7. PRAVASTATIN. [Concomitant]
     Active Substance: PRAVASTATIN
     Dosage: ON TUESDAY AND FRIDAY?REPORTED AS PRAVASTATINE ARROW
     Route: 048
  8. NOCTAMIDE [Concomitant]
     Active Substance: LORMETAZEPAM
     Dosage: 0.5 OR 1 DF EVERY NIGHT
     Route: 065
  9. DEROXAT [Concomitant]
     Active Substance: PAROXETINE HYDROCHLORIDE
     Route: 048
  10. BURINEX [Concomitant]
     Active Substance: BUMETANIDE
     Route: 048
  11. FUNGIZONE [Concomitant]
     Active Substance: AMPHOTERICIN B
     Dosage: 40-ML VIAL
     Route: 048
  12. SODIUM BICARBONATE. [Concomitant]
     Active Substance: SODIUM BICARBONATE
     Dosage: SODIUM BICARBONATE RENAUDIN 1.4%
     Route: 002

REACTIONS (1)
  - Dyspnoea [Not Recovered/Not Resolved]

NARRATIVE: CASE EVENT DATE: 20161224
